FAERS Safety Report 5424631-5 (Version None)
Quarter: 2007Q4

REPORT INFORMATION
  Report Type: 
  Country: None (occurrence: None)
  Receive Date: 20070731
  Receipt Date: 20070330
  Transmission Date: 20080405
  Serious: No
  Sender: FDA-Public Use
  Company Number: 2007PV032754

PATIENT
  Age: 66 Year
  Sex: Female
  Weight: 133.4 kg

DRUGS (10)
  1. EXENATIDE (EXENATIDE) PEN, DISPOSABLE [Suspect]
     Indication: TYPE 2 DIABETES MELLITUS
     Dosage: 10 UG, 2/D, SUBCUTANEOUS; 5 UG, 2/D, SUBCUTANEOUS
     Route: 057
     Dates: start: 20060101
  2. EXENATIDE (EXENATIDE) PEN, DISPOSABLE [Suspect]
     Indication: TYPE 2 DIABETES MELLITUS
     Dosage: 10 UG, 2/D, SUBCUTANEOUS; 5 UG, 2/D, SUBCUTANEOUS
     Route: 057
     Dates: start: 20060101
  3. HUMALOG [Concomitant]
  4. LANTUS [Concomitant]
  5. CYMBALTA [Concomitant]
  6. ISOSORBIDE DINITRATE [Concomitant]
  7. VERAPAMIL [Concomitant]
  8. NEXIUM [Concomitant]
  9. METOPROLOL SUCCINATE [Concomitant]
  10. LIPITOR [Concomitant]

REACTIONS (4)
  - CEREBROVASCULAR ACCIDENT [None]
  - DECREASED APPETITE [None]
  - SILENT MYOCARDIAL INFARCTION [None]
  - WEIGHT DECREASED [None]
